FAERS Safety Report 5640908-2 (Version None)
Quarter: 2008Q1

REPORT INFORMATION
  Report Type: 
  Country: None (occurrence: None)
  Receive Date: 20080227
  Receipt Date: 20080225
  Transmission Date: 20080703
  Serious: Yes (Death)
  Sender: FDA-Public Use
  Company Number: D0055934A

PATIENT
  Age: 72 Year
  Sex: Male

DRUGS (6)
  1. AVANDIA [Suspect]
     Dosage: 4MG PER DAY
     Route: 048
     Dates: start: 20070824, end: 20080108
  2. LEVEMIR [Concomitant]
     Dosage: 36IU PER DAY
     Route: 065
  3. ALDACTONE [Concomitant]
     Dosage: 25MG PER DAY
     Route: 048
  4. METOPROLOL SUCCINATE [Concomitant]
     Route: 065
  5. CIBADREX [Concomitant]
     Dosage: 45MG PER DAY
     Route: 048
  6. GABAPENTIN [Concomitant]
     Dosage: 300MG PER DAY
     Route: 065

REACTIONS (2)
  - CARDIAC ARREST [None]
  - CARDIAC FAILURE CONGESTIVE [None]
